FAERS Safety Report 10739219 (Version 2)
Quarter: 2015Q1

REPORT INFORMATION
  Report Type: Spontaneous
  Country: US (occurrence: US)
  Receive Date: 20150126
  Receipt Date: 20150303
  Transmission Date: 20150721
  Serious: No
  Sender: FDA-Public Use
  Company Number: US-PFIZER INC-2015025230

PATIENT
  Age: 77 Year
  Sex: Male
  Weight: 75 kg

DRUGS (9)
  1. TORISEL [Suspect]
     Active Substance: TEMSIROLIMUS
     Indication: RENAL CELL CARCINOMA
     Dosage: 1 MG, UNK
     Route: 042
     Dates: start: 201401, end: 201405
  2. NORVASC [Concomitant]
     Active Substance: AMLODIPINE BESYLATE
     Indication: OEDEMA PERIPHERAL
     Dosage: 5 MG, UNK
     Dates: end: 20140710
  3. LOSARTAN [Concomitant]
     Active Substance: LOSARTAN
     Indication: BLOOD PRESSURE ABNORMAL
     Dosage: 15 MG (FREQUENCY UNKNOWN)
  4. AMLODIPINE BESILATE [Concomitant]
     Active Substance: AMLODIPINE BESYLATE
     Indication: BLOOD PRESSURE ABNORMAL
     Dosage: 5 MG (FREQUENCY UNKNOWN)
  5. ADVAIR HFA [Concomitant]
     Active Substance: FLUTICASONE PROPIONATE\SALMETEROL XINAFOATE
     Indication: ASTHMA
     Dosage: UNK(PUFF), 1X/DAY
  6. TORISEL [Suspect]
     Active Substance: TEMSIROLIMUS
     Indication: METASTASES TO BONE
     Dosage: 25 MG, WEEKLY
     Route: 042
     Dates: start: 20140102, end: 20140703
  7. TORISEL [Suspect]
     Active Substance: TEMSIROLIMUS
     Indication: RENAL CANCER METASTATIC
     Dosage: UNK
     Dates: start: 20140501, end: 20140703
  8. LIPITOR [Concomitant]
     Active Substance: ATORVASTATIN CALCIUM
     Indication: BLOOD CHOLESTEROL
     Dosage: UNK
  9. LOSARTAN [Concomitant]
     Active Substance: LOSARTAN
     Indication: HYPERTENSION
     Dosage: 50 MG, UNK
     Dates: start: 20140710

REACTIONS (5)
  - Swelling [Recovered/Resolved]
  - Mobility decreased [Unknown]
  - Oedema peripheral [Unknown]
  - Peripheral swelling [Recovered/Resolved]
  - Joint swelling [Recovered/Resolved]

NARRATIVE: CASE EVENT DATE: 201403
